FAERS Safety Report 12337897 (Version 1)
Quarter: 2016Q2

REPORT INFORMATION
  Report Type: Spontaneous
  Country: FR (occurrence: FR)
  Receive Date: 20160505
  Receipt Date: 20160505
  Transmission Date: 20160815
  Serious: Yes (Other)
  Sender: FDA-Public Use
  Company Number: FR-BAYER-2014-144854

PATIENT
  Age: 58 Year
  Sex: Male

DRUGS (3)
  1. NEXAVAR [Suspect]
     Active Substance: SORAFENIB
     Indication: HEPATIC CANCER
     Dosage: UNK
     Route: 048
     Dates: start: 201406, end: 20140825
  2. NEXAVAR [Suspect]
     Active Substance: SORAFENIB
     Indication: HEPATIC CANCER
     Dosage: RE-INTRODUCED AT HALF DOSAGE
  3. NEXAVAR [Suspect]
     Active Substance: SORAFENIB
     Indication: HEPATIC CANCER
     Dosage: FULL DOSAGE

REACTIONS (1)
  - Psoriasis [Recovered/Resolved]

NARRATIVE: CASE EVENT DATE: 20140823
